FAERS Safety Report 7646760-8 (Version None)
Quarter: 2011Q3

REPORT INFORMATION
  Report Type: 
  Country: None (occurrence: None)
  Receive Date: 20110801
  Receipt Date: 20110721
  Transmission Date: 20111222
  Serious: Yes (Hospitalization, Other)
  Sender: FDA-Public Use
  Company Number: AR-AMGEN-ARGSP2011035495

PATIENT
  Age: 64 Year
  Sex: Female
  Weight: 90.5 kg

DRUGS (3)
  1. ENBREL [Suspect]
     Dosage: 25 MG, 2 TIMES/WK
     Route: 058
     Dates: start: 20110701
  2. METHOTREXATE SODIUM [Concomitant]
     Dosage: UNK
     Dates: end: 20110601
  3. ENBREL [Suspect]
     Indication: PSORIATIC ARTHROPATHY
     Dosage: 50 MG, WEEKLY
     Route: 058
     Dates: start: 20090430, end: 20110501

REACTIONS (2)
  - BREAST CANCER FEMALE [None]
  - HEPATIC CYST [None]
